FAERS Safety Report 10133564 (Version 2)
Quarter: 2014Q2

REPORT INFORMATION
  Report Type: Spontaneous
  Country: US (occurrence: US)
  Receive Date: 20140428
  Receipt Date: 20140530
  Transmission Date: 20141212
  Serious: Yes (Hospitalization)
  Sender: FDA-Public Use
  Company Number: US-PERRIGO-14US004191

PATIENT
  Age: 44 Year
  Sex: Female
  Weight: 111.11 kg

DRUGS (20)
  1. LORATADINE 10 MG 612 [Suspect]
     Indication: RHINORRHOEA
     Dosage: 1 TABLET, QD
     Route: 048
     Dates: start: 20140411, end: 20140414
  2. LORATADINE 10 MG 612 [Suspect]
     Indication: EYE PRURITUS
  3. LORATADINE 10 MG 612 [Suspect]
     Indication: SNEEZING
  4. LORATADINE 10 MG 612 [Suspect]
     Indication: OROPHARYNGEAL PAIN
  5. SYNTHROID [Concomitant]
     Indication: THYROID DISORDER
     Dosage: 0.125 MG, QD
     Route: 048
  6. NEURONTIN [Concomitant]
     Indication: RESTLESS LEGS SYNDROME
     Dosage: 600 MG, QD
     Route: 048
  7. COLACE [Concomitant]
     Indication: CONSTIPATION
     Dosage: 100 MG, BID
     Route: 065
  8. MOBIC [Concomitant]
     Indication: PAIN
     Dosage: 7.5 MG, QD
     Route: 065
  9. FAMOTIDINE [Concomitant]
     Indication: GASTROOESOPHAGEAL REFLUX DISEASE
     Dosage: 20 MG, BID
     Route: 065
  10. PROPRANOL [Concomitant]
     Indication: RESTLESS LEGS SYNDROME
     Dosage: 10 MG, QHS
     Route: 065
  11. SUCRALFATE [Concomitant]
     Indication: GASTRIC DISORDER
     Dosage: 1 G, QID
     Route: 065
  12. TESSALON PERLE [Concomitant]
     Indication: COUGH
     Dosage: 100 MG, BID
     Route: 065
  13. SINGULAIR [Concomitant]
     Indication: HYPERSENSITIVITY
     Dosage: 10 MG, QAM
     Route: 065
  14. SYMBICORT [Concomitant]
     Indication: ASTHMA
     Dosage: 160/4.5 MCG, 2 PUFFS, BID
     Route: 055
  15. INDERAL [Concomitant]
     Indication: HYPERTENSION
     Dosage: 20 MG, QID
     Route: 065
  16. PROAIR                             /00139502/ [Concomitant]
     Indication: ASTHMA
     Dosage: 2 PUFFS EVERY 4 TO 6 HOURS AS NEEDED
     Route: 065
  17. ROPINIROL [Concomitant]
     Indication: PRODUCT USED FOR UNKNOWN INDICATION
     Dosage: 1 MG, QD
     Route: 048
  18. ENOXAPARIN [Concomitant]
     Indication: PRODUCT USED FOR UNKNOWN INDICATION
     Dosage: 167.37 MG, QD
     Route: 058
  19. VITAMIN D3 [Concomitant]
     Indication: PRODUCT USED FOR UNKNOWN INDICATION
     Dosage: 0.5 DF, QD
     Route: 048
  20. FERROUS SULFATE [Concomitant]
     Indication: PRODUCT USED FOR UNKNOWN INDICATION
     Dosage: 325 MG, QD
     Route: 048

REACTIONS (8)
  - Swelling face [Recovered/Resolved]
  - Dyspnoea [Not Recovered/Not Resolved]
  - Blood pressure increased [Recovered/Resolved]
  - Pneumonia [Not Recovered/Not Resolved]
  - Wheezing [Not Recovered/Not Resolved]
  - Pyrexia [Recovered/Resolved]
  - Cough [Not Recovered/Not Resolved]
  - Off label use [Recovered/Resolved]
